FAERS Safety Report 7687262-2 (Version None)
Quarter: 2011Q3

REPORT INFORMATION
  Report Type: 
  Country: None (occurrence: None)
  Receive Date: 20110816
  Receipt Date: 20110804
  Transmission Date: 20111222
  Serious: Yes (Hospitalization)
  Sender: FDA-Public Use
  Company Number: SE-SANOFI-AVENTIS-2011SA044123

PATIENT
  Age: 69 Year
  Sex: Female
  Weight: 71 kg

DRUGS (4)
  1. DRONEDARONE HCL [Suspect]
     Indication: ATRIAL FIBRILLATION
     Route: 048
     Dates: start: 20101123
  2. SIMAVASTATIN [Concomitant]
  3. WARFARIN SODIUM [Concomitant]
     Dosage: 17.5 MG WEEKLY
  4. ENALAPRIL MALEATE [Concomitant]

REACTIONS (1)
  - MUSCLE HAEMORRHAGE [None]
